FAERS Safety Report 5199215-7 (Version None)
Quarter: 2006Q4

REPORT INFORMATION
  Report Type: 
  Country: None (occurrence: None)
  Receive Date: 20061016
  Receipt Date: 20060622
  Transmission Date: 20070319
  Serious: No
  Sender: FDA-Public Use
  Company Number: 2006SP002498

PATIENT
  Age: 49 Year
  Sex: Female
  Weight: 49.8957 kg

DRUGS (7)
  1. LUNESTA [Suspect]
     Indication: INSOMNIA
     Dosage: SEE IMAGE
     Route: 048
     Dates: start: 20050101, end: 20050101
  2. LUNESTA [Suspect]
     Indication: INSOMNIA
     Dosage: SEE IMAGE
     Route: 048
     Dates: start: 20060621
  3. ATORVASTATIN CALCIUM [Concomitant]
  4. VERAPAMIL [Concomitant]
  5. PREVACID [Concomitant]
  6. TIOTROPIUM BROMIDE [Concomitant]
  7. ALBUTEROL [Concomitant]

REACTIONS (1)
  - DYSGEUSIA [None]
